FAERS Safety Report 20495420 (Version 1)
Quarter: 2022Q1

REPORT INFORMATION
  Report Type: Spontaneous
  Country: GB (occurrence: GB)
  Receive Date: 20220221
  Receipt Date: 20220221
  Transmission Date: 20220424
  Serious: Yes (Other)
  Sender: FDA-Public Use
  Company Number: None

PATIENT
  Age: 41 Year
  Sex: Female
  Weight: 70 kg

DRUGS (10)
  1. NAPROXEN [Suspect]
     Active Substance: NAPROXEN
     Indication: Product used for unknown indication
     Dosage: 500 MILLIGRAM, BID, WITH FOOD
     Dates: start: 20211028
  2. ASPIRIN [Concomitant]
     Active Substance: ASPIRIN
     Dosage: 300 MILLIGRAM, QD
     Dates: start: 20210813, end: 20210911
  3. ATORVASTATIN [Concomitant]
     Active Substance: ATORVASTATIN
     Dosage: 80 MILLIGRAM, QD
     Dates: start: 20210813
  4. CLOPIDOGREL [Concomitant]
     Active Substance: CLOPIDOGREL BISULFATE
     Dosage: 75 MILLIGRAM, QD
     Dates: start: 20210817
  5. DESOGESTREL [Concomitant]
     Active Substance: DESOGESTREL
     Indication: Cerebrovascular accident
     Dosage: 75 MICROGRAM, QD (AT THE SAME TIME EACH DAY)
     Dates: start: 20210921
  6. MIRTAZAPINE [Concomitant]
     Active Substance: MIRTAZAPINE
     Dosage: 15 MILLIGRAM, QD 15 MG, 1 EACH NIGHT, INCREASE TO 2 TABLETS IF SIGNIFICANT IMPROVEMENT AND WELL TOLE
     Dates: start: 20210921
  7. OMEPRAZOLE [Concomitant]
     Active Substance: OMEPRAZOLE
     Dosage: 20 MILLIGRAM, QD
     Dates: start: 20211028
  8. TARMED [Concomitant]
     Dosage: 150 MILLILITER, AS DIRECTED
     Dates: start: 20210825, end: 20211007
  9. SERTRALINE [Concomitant]
     Active Substance: SERTRALINE HYDROCHLORIDE
     Dosage: 50 MILLIGRAM, QD
     Dates: start: 20210825, end: 20211007
  10. TRANEXAMIC ACID [Concomitant]
     Active Substance: TRANEXAMIC ACID
     Dosage: 1 GRAM, TID, WHEN MENSTRUATING
     Dates: start: 20210818, end: 20210930

REACTIONS (1)
  - Contusion [Recovered/Resolved]
